FAERS Safety Report 11534271 (Version 1)
Quarter: 2015Q3

REPORT INFORMATION
  Report Type: Spontaneous
  Country: US (occurrence: US)
  Receive Date: 20150922
  Receipt Date: 20150922
  Transmission Date: 20151125
  Serious: No
  Sender: FDA-Public Use
  Company Number: US-BEH-200914706

PATIENT
  Age: 37 Year
  Sex: Male
  Weight: 84 kg

DRUGS (4)
  1. CALCIUM CHLORIDE DIHYDRATE [Concomitant]
     Active Substance: CALCIUM CHLORIDE
     Indication: FLUID REPLACEMENT
     Route: 042
     Dates: start: 20090208, end: 20090208
  2. ALBUMIN HUMAN [Suspect]
     Active Substance: ALBUMIN (HUMAN)
     Indication: PLASMAPHERESIS
     Route: 042
     Dates: start: 20090208, end: 20090208
  3. ALBUMIN HUMAN [Suspect]
     Active Substance: ALBUMIN (HUMAN)
     Indication: FLUID REPLACEMENT
     Route: 042
     Dates: start: 20090208, end: 20090208
  4. POTASSIUM CHLORIDE. [Concomitant]
     Active Substance: POTASSIUM CHLORIDE
     Indication: FLUID REPLACEMENT
     Route: 042
     Dates: start: 20090208, end: 20090208

REACTIONS (1)
  - Urticaria [Recovered/Resolved]

NARRATIVE: CASE EVENT DATE: 20090208
